FAERS Safety Report 5671999-0 (Version None)
Quarter: 2008Q1

REPORT INFORMATION
  Report Type: 
  Country: None (occurrence: None)
  Receive Date: 20080317
  Receipt Date: 20080317
  Transmission Date: 20080703
  Serious: Yes (Death, Life-Threatening, Hospitalization, Other)
  Sender: FDA-Public Use
  Company Number: None

PATIENT
  Age: 73 Year
  Sex: Female
  Weight: 68.0396 kg

DRUGS (2)
  1. FLUOROURACIL [Suspect]
     Indication: VULVAL CANCER
  2. CISPLATIN [Suspect]

REACTIONS (2)
  - ILL-DEFINED DISORDER [None]
  - MALAISE [None]
